FAERS Safety Report 25665642 (Version 1)
Quarter: 2025Q3

REPORT INFORMATION
  Report Type: Spontaneous
  Country: EU (occurrence: EU)
  Receive Date: 20250811
  Receipt Date: 20250811
  Transmission Date: 20251021
  Serious: Yes (Hospitalization)
  Sender: FRESENIUS KABI
  Company Number: None

PATIENT
  Age: 42 Year
  Sex: Male

DRUGS (6)
  1. PROPOFOL [Suspect]
     Active Substance: PROPOFOL
     Indication: Status epilepticus
     Route: 042
     Dates: start: 20250712, end: 20250714
  2. KETAMINE [Suspect]
     Active Substance: KETAMINE
     Indication: Status epilepticus
     Route: 042
     Dates: start: 20250712, end: 20250714
  3. MIDAZOLAM [Suspect]
     Active Substance: MIDAZOLAM
     Indication: Status epilepticus
     Route: 042
     Dates: start: 20250712, end: 20250716
  4. SUFENTANIL [Suspect]
     Active Substance: SUFENTANIL
     Indication: Status epilepticus
     Route: 042
     Dates: start: 20250712, end: 20250716
  5. KEPPRA [Suspect]
     Active Substance: LEVETIRACETAM
     Indication: Status epilepticus
     Dosage: 500 MG IV 2X/D
     Route: 042
     Dates: start: 20250712, end: 20250715
  6. THIOPENTAL SODIUM [Suspect]
     Active Substance: THIOPENTAL SODIUM
     Indication: Status epilepticus
     Route: 042
     Dates: start: 20250714, end: 20250715

REACTIONS (1)
  - Liver injury [Recovering/Resolving]

NARRATIVE: CASE EVENT DATE: 20250716
